FAERS Safety Report 5918761-9 (Version None)
Quarter: 2008Q4

REPORT INFORMATION
  Report Type: 
  Country: None (occurrence: None)
  Receive Date: 20081015
  Receipt Date: 20080804
  Transmission Date: 20090506
  Serious: No
  Sender: FDA-Public Use
  Company Number: US-ASTRAZENECA-2008UW15852

PATIENT
  Age: 59 Year
  Sex: Female

DRUGS (6)
  1. SYMBICORT [Suspect]
     Indication: ASTHMA
     Dosage: 160 / 4.5UG - 2 PUFFS BID
     Route: 055
     Dates: start: 20080804
  2. SYMBICORT [Suspect]
     Indication: CHRONIC OBSTRUCTIVE PULMONARY DISEASE
     Dosage: 160 / 4.5UG - 2 PUFFS BID
     Route: 055
     Dates: start: 20080804
  3. LITHIUM [Concomitant]
  4. ATIVAN [Concomitant]
  5. ELAVIL [Concomitant]
  6. ZANTAC [Concomitant]

REACTIONS (2)
  - PALPITATIONS [None]
  - PRURITUS [None]
